FAERS Safety Report 26083032 (Version 1)
Quarter: 2025Q4

REPORT INFORMATION
  Report Type: Spontaneous
  Country: CA (occurrence: CA)
  Receive Date: 20251124
  Receipt Date: 20251124
  Transmission Date: 20260118
  Serious: Yes (Death, Other)
  Sender: BRISTOL-MYERS SQUIBB COMPANY
  Company Number: CA-BRISTOL-MYERS SQUIBB COMPANY-2025-158209

PATIENT
  Age: 43 Year
  Sex: Female
  Weight: 96 kg

DRUGS (121)
  1. ORENCIA [Suspect]
     Active Substance: ABATACEPT
     Indication: Rheumatoid arthritis
     Route: 058
  2. ORENCIA [Suspect]
     Active Substance: ABATACEPT
     Indication: Rheumatoid arthritis
     Route: 040
  3. TRIAMCINOLONE ACETONIDE [Suspect]
     Active Substance: TRIAMCINOLONE ACETONIDE
     Indication: Rheumatoid arthritis
     Route: 014
  4. ADALIMUMAB [Concomitant]
     Active Substance: ADALIMUMAB
     Indication: Rheumatoid arthritis
     Route: 058
  5. AIMOVIG [Concomitant]
     Active Substance: ERENUMAB-AOOE
     Indication: Migraine
  6. ALENDRONIC ACID [Concomitant]
     Active Substance: ALENDRONIC ACID
     Indication: Rheumatoid arthritis
     Route: 048
  7. AZULFIDINE [Concomitant]
     Active Substance: SULFASALAZINE
     Indication: Product used for unknown indication
  8. BERINERT [Concomitant]
     Active Substance: HUMAN C1-ESTERASE INHIBITOR
     Indication: Product used for unknown indication
  9. BUPRENORPHINE HYDROCHLORIDE [Concomitant]
     Active Substance: BUPRENORPHINE HYDROCHLORIDE
     Indication: Product used for unknown indication
  10. CALCIUM ASCORBATE [Concomitant]
     Active Substance: CALCIUM ASCORBATE
     Indication: Product used for unknown indication
  11. CANDESARTAN [Concomitant]
     Active Substance: CANDESARTAN
     Indication: Rheumatoid arthritis
     Route: 048
  12. CANDESARTAN [Concomitant]
     Active Substance: CANDESARTAN
     Indication: Migraine
  13. CHOLECALCIFEROL [Concomitant]
     Active Substance: CHOLECALCIFEROL
     Indication: Rheumatoid arthritis
  14. CHOLECALCIFEROL [Concomitant]
     Active Substance: CHOLECALCIFEROL
     Route: 016
  15. CHOLECALCIFEROL [Concomitant]
     Active Substance: CHOLECALCIFEROL
  16. COSENTYX [Concomitant]
     Active Substance: SECUKINUMAB
     Indication: Rheumatoid arthritis
  17. COSENTYX [Concomitant]
     Active Substance: SECUKINUMAB
     Indication: Psoriatic arthropathy
  18. CYCLOBENZAPRINE [Concomitant]
     Active Substance: CYCLOBENZAPRINE
     Indication: Product used for unknown indication
  19. DICLOFENAC [Concomitant]
     Active Substance: DICLOFENAC
     Indication: Product used for unknown indication
  20. DICLOFENAC [Concomitant]
     Active Substance: DICLOFENAC
  21. DICLOFENAC SODIUM [Concomitant]
     Active Substance: DICLOFENAC SODIUM
     Indication: Product used for unknown indication
     Route: 058
  22. ERELZI [Concomitant]
     Active Substance: ETANERCEPT-SZZS
     Indication: Rheumatoid arthritis
  23. ERELZI [Concomitant]
     Active Substance: ETANERCEPT-SZZS
     Route: 058
  24. ERELZI [Concomitant]
     Active Substance: ETANERCEPT-SZZS
  25. ERELZI [Concomitant]
     Active Substance: ETANERCEPT-SZZS
  26. ERELZI [Concomitant]
     Active Substance: ETANERCEPT-SZZS
     Route: 058
  27. ERELZI [Concomitant]
     Active Substance: ETANERCEPT-SZZS
     Route: 058
  28. ERELZI [Concomitant]
     Active Substance: ETANERCEPT-SZZS
     Route: 058
  29. ERELZI [Concomitant]
     Active Substance: ETANERCEPT-SZZS
     Route: 058
  30. ERGOCALCIFEROL [Concomitant]
     Active Substance: ERGOCALCIFEROL
     Indication: Rheumatoid arthritis
  31. FINACEA [Concomitant]
     Active Substance: AZELAIC ACID
     Indication: Product used for unknown indication
  32. FLUMETHASONE PIVALATE [Concomitant]
     Active Substance: FLUMETHASONE PIVALATE
     Indication: Rheumatoid arthritis
  33. FLUMETHASONE PIVALATE [Concomitant]
     Active Substance: FLUMETHASONE PIVALATE
     Route: 058
  34. FLUTICASONE [Concomitant]
     Active Substance: FLUTICASONE
     Indication: Product used for unknown indication
  35. GOLD SODIUM THIOMALATE [Concomitant]
     Active Substance: GOLD SODIUM THIOMALATE
     Indication: Product used for unknown indication
     Route: 030
  36. LAMOTRIGINE [Concomitant]
     Active Substance: LAMOTRIGINE
     Indication: Product used for unknown indication
  37. LAMOTRIGINE [Concomitant]
     Active Substance: LAMOTRIGINE
     Route: 048
  38. LEFLUNOMIDE [Concomitant]
     Active Substance: LEFLUNOMIDE
     Indication: Rheumatoid arthritis
     Route: 048
  39. LEFLUNOMIDE [Concomitant]
     Active Substance: LEFLUNOMIDE
  40. LEVOMILNACIPRAN [Concomitant]
     Active Substance: LEVOMILNACIPRAN
     Indication: Product used for unknown indication
  41. LISINOPRIL [Concomitant]
     Active Substance: LISINOPRIL
     Indication: Product used for unknown indication
  42. LORAZEPAM [Concomitant]
     Active Substance: LORAZEPAM
     Indication: Product used for unknown indication
  43. LYSINE HYDROCHLORIDE [Concomitant]
     Active Substance: LYSINE HYDROCHLORIDE
     Indication: Product used for unknown indication
  44. MAGNESIUM CHLORIDE ANHYDROUS [Concomitant]
     Active Substance: MAGNESIUM CHLORIDE ANHYDROUS
     Indication: Product used for unknown indication
     Route: 048
  45. MAGNESIUM CHLORIDE ANHYDROUS [Concomitant]
     Active Substance: MAGNESIUM CHLORIDE ANHYDROUS
     Route: 048
  46. MAGNESIUM CITRATE [Concomitant]
     Active Substance: MAGNESIUM CITRATE
     Indication: Product used for unknown indication
  47. METFORMIN HYDROCHLORIDE [Concomitant]
     Active Substance: METFORMIN HYDROCHLORIDE
     Indication: Migraine
  48. METHOTREXATE [Concomitant]
     Active Substance: METHOTREXATE
     Indication: Rheumatoid arthritis
     Route: 048
  49. METHOTREXATE [Concomitant]
     Active Substance: METHOTREXATE
  50. METHOTREXATE [Concomitant]
     Active Substance: METHOTREXATE
  51. METHOTREXATE [Concomitant]
     Active Substance: METHOTREXATE
     Route: 048
  52. METHOTREXATE [Concomitant]
     Active Substance: METHOTREXATE
  53. METHOTREXATE [Concomitant]
     Active Substance: METHOTREXATE
     Route: 048
  54. METHOTREXATE [Concomitant]
     Active Substance: METHOTREXATE
     Route: 048
  55. METHYLCOBALAMIN [Concomitant]
     Active Substance: METHYLCOBALAMIN
     Indication: Product used for unknown indication
  56. METHYLPREDNISOLONE [Concomitant]
     Active Substance: METHYLPREDNISOLONE
     Indication: Product used for unknown indication
  57. METHYLPREDNISOLONE SODIUM SUCCINATE [Concomitant]
     Active Substance: METHYLPREDNISOLONE SODIUM SUCCINATE
     Indication: Product used for unknown indication
  58. MINOCYCLINE HYDROCHLORIDE [Concomitant]
     Active Substance: MINOCYCLINE HYDROCHLORIDE
     Indication: Product used for unknown indication
  59. MYRBETRIQ [Concomitant]
     Active Substance: MIRABEGRON
     Indication: Product used for unknown indication
     Dosage: TABLET (EXTENDED RELEASE)
  60. MYRBETRIQ [Concomitant]
     Active Substance: MIRABEGRON
     Route: 048
  61. NAPROXEN [Concomitant]
     Active Substance: NAPROXEN
     Indication: Product used for unknown indication
  62. NAPROXEN SODIUM [Concomitant]
     Active Substance: NAPROXEN SODIUM
     Indication: Product used for unknown indication
  63. NUCALA [Concomitant]
     Active Substance: MEPOLIZUMAB
     Indication: Product used for unknown indication
  64. OTEZLA [Concomitant]
     Active Substance: APREMILAST
     Indication: Rheumatoid arthritis
  65. OTEZLA [Concomitant]
     Active Substance: APREMILAST
     Indication: Psoriasis
  66. OXYCODONE [Concomitant]
     Active Substance: OXYCODONE
     Indication: Product used for unknown indication
  67. OXYCODONE TEREPHTHALATE [Concomitant]
     Active Substance: OXYCODONE TEREPHTHALATE
     Indication: Product used for unknown indication
  68. PANTOPRAZOLE SODIUM [Concomitant]
     Active Substance: PANTOPRAZOLE SODIUM
     Indication: Dyspepsia
  69. PANTOPRAZOLE SODIUM [Concomitant]
     Active Substance: PANTOPRAZOLE SODIUM
     Route: 016
  70. PANTOPRAZOLE SODIUM [Concomitant]
     Active Substance: PANTOPRAZOLE SODIUM
  71. PANTOPRAZOLE SODIUM [Concomitant]
     Active Substance: PANTOPRAZOLE SODIUM
     Indication: Product used for unknown indication
  72. PHENYLEPHRINE HYDROCHLORIDE [Concomitant]
     Active Substance: PHENYLEPHRINE HYDROCHLORIDE
     Indication: Rheumatoid arthritis
  73. PHTHALYLSULFATHIAZOLE [Concomitant]
     Active Substance: PHTHALYLSULFATHIAZOLE
     Indication: Rheumatoid arthritis
  74. PHTHALYLSULFATHIAZOLE [Concomitant]
     Active Substance: PHTHALYLSULFATHIAZOLE
     Route: 058
  75. PHTHALYLSULFATHIAZOLE [Concomitant]
     Active Substance: PHTHALYLSULFATHIAZOLE
     Route: 048
  76. PHTHALYLSULFATHIAZOLE [Concomitant]
     Active Substance: PHTHALYLSULFATHIAZOLE
     Route: 048
  77. PHTHALYLSULFATHIAZOLE [Concomitant]
     Active Substance: PHTHALYLSULFATHIAZOLE
     Route: 048
  78. PREDNISONE [Concomitant]
     Active Substance: PREDNISONE
     Indication: Rheumatoid arthritis
     Route: 048
  79. PSEUDOEPHEDRINE HYDROCHLORIDE [Concomitant]
     Active Substance: PSEUDOEPHEDRINE HYDROCHLORIDE
     Indication: Rheumatoid arthritis
  80. PSEUDOEPHEDRINE HYDROCHLORIDE [Concomitant]
     Active Substance: PSEUDOEPHEDRINE HYDROCHLORIDE
  81. PSEUDOEPHEDRINE HYDROCHLORIDE [Concomitant]
     Active Substance: PSEUDOEPHEDRINE HYDROCHLORIDE
  82. PYRIDOXINE HYDROCHLORIDE [Concomitant]
     Active Substance: PYRIDOXINE HYDROCHLORIDE
     Indication: Rheumatoid arthritis
  83. QUETIAPINE FUMARATE [Concomitant]
     Active Substance: QUETIAPINE FUMARATE
     Indication: Product used for unknown indication
  84. RAMIPRIL [Concomitant]
     Active Substance: RAMIPRIL
     Indication: Product used for unknown indication
     Route: 016
  85. RANITIDINE HYDROCHLORIDE [Concomitant]
     Active Substance: RANITIDINE HYDROCHLORIDE
     Indication: Rheumatoid arthritis
  86. REMICADE [Concomitant]
     Active Substance: INFLIXIMAB
     Indication: Rheumatoid arthritis
     Dosage: POWDER FOR SOLUTION
     Route: 040
  87. RISEDRONATE SODIUM [Concomitant]
     Active Substance: RISEDRONATE SODIUM
     Indication: Product used for unknown indication
  88. RITUXIMAB [Concomitant]
     Active Substance: RITUXIMAB
     Indication: Rheumatoid arthritis
     Route: 040
  89. DIETARY SUPPLEMENT\HERBALS [Concomitant]
     Active Substance: DIETARY SUPPLEMENT\HERBALS
     Indication: Product used for unknown indication
  90. DIETARY SUPPLEMENT\HERBALS [Concomitant]
     Active Substance: DIETARY SUPPLEMENT\HERBALS
     Indication: Product used for unknown indication
  91. SULFASALAZINE [Concomitant]
     Active Substance: SULFASALAZINE
     Indication: Product used for unknown indication
  92. FISH OIL [Concomitant]
     Active Substance: FISH OIL
     Indication: Product used for unknown indication
  93. CELECOXIB [Concomitant]
     Active Substance: CELECOXIB
     Indication: Product used for unknown indication
  94. CELECOXIB [Concomitant]
     Active Substance: CELECOXIB
  95. SIMPONI [Concomitant]
     Active Substance: GOLIMUMAB
     Indication: Prostatic specific antigen
     Dosage: SOLUTION SUBCUTANEOUS
     Route: 058
  96. SIMPONI [Concomitant]
     Active Substance: GOLIMUMAB
  97. GOLD SODIUM THIOMALATE [Concomitant]
     Active Substance: GOLD SODIUM THIOMALATE
     Indication: Product used for unknown indication
  98. SULFAMETHOXAZOLE [Concomitant]
     Active Substance: SULFAMETHOXAZOLE
     Indication: Product used for unknown indication
  99. SULFASALAZINE [Concomitant]
     Active Substance: SULFASALAZINE
     Indication: Rheumatoid arthritis
     Route: 048
  100. SULFASALAZINE [Concomitant]
     Active Substance: SULFASALAZINE
     Route: 058
  101. SULFASALAZINE [Concomitant]
     Active Substance: SULFASALAZINE
     Route: 048
  102. SULFASALAZINE [Concomitant]
     Active Substance: SULFASALAZINE
     Route: 048
  103. SULFASALAZINE [Concomitant]
     Active Substance: SULFASALAZINE
     Route: 048
  104. SULFASALAZINE [Concomitant]
     Active Substance: SULFASALAZINE
     Route: 058
  105. SULFASALAZINE [Concomitant]
     Active Substance: SULFASALAZINE
     Route: 058
  106. SULFASALAZINE [Concomitant]
     Active Substance: SULFASALAZINE
     Route: 048
  107. SULFASALAZINE [Concomitant]
     Active Substance: SULFASALAZINE
     Route: 048
  108. SULFASALAZINE [Concomitant]
     Active Substance: SULFASALAZINE
     Route: 048
  109. SULFASALAZINE [Concomitant]
     Active Substance: SULFASALAZINE
  110. SULFATHIAZOLE [Concomitant]
     Active Substance: SULFATHIAZOLE
     Indication: Product used for unknown indication
  111. TOFACITINIB [Concomitant]
     Active Substance: TOFACITINIB
     Indication: Rheumatoid arthritis
  112. TOPAMAX [Concomitant]
     Active Substance: TOPIRAMATE
     Indication: Migraine
     Route: 048
  113. TOPAMAX [Concomitant]
     Active Substance: TOPIRAMATE
  114. TOPAMAX [Concomitant]
     Active Substance: TOPIRAMATE
  115. TRAMADOL HYDROCHLORIDE [Concomitant]
     Active Substance: TRAMADOL HYDROCHLORIDE
     Indication: Migraine
  116. TYLENOL [Concomitant]
     Active Substance: ACETAMINOPHEN
     Indication: Product used for unknown indication
  117. VENTOLIN [Concomitant]
     Active Substance: ALBUTEROL SULFATE
     Indication: Product used for unknown indication
  118. VITAMIN C [Concomitant]
     Active Substance: ASCORBIC ACID
     Indication: Product used for unknown indication
  119. XELJANZ [Concomitant]
     Active Substance: TOFACITINIB CITRATE
     Indication: Rheumatoid arthritis
  120. XELJANZ [Concomitant]
     Active Substance: TOFACITINIB CITRATE
  121. ZOPICLONE [Concomitant]
     Active Substance: ZOPICLONE
     Indication: Product used for unknown indication

REACTIONS (1)
  - Death [Fatal]
